FAERS Safety Report 8487983-8 (Version None)
Quarter: 2012Q3

REPORT INFORMATION
  Report Type: 
  Country: None (occurrence: None)
  Receive Date: 20120705
  Receipt Date: 20120628
  Transmission Date: 20120928
  Serious: Yes (Other)
  Sender: FDA-Public Use
  Company Number: PHEH2012US012986

PATIENT
  Sex: Female

DRUGS (2)
  1. LOVASTATIN [Concomitant]
     Dosage: UNK UKN, UNK
  2. DIOVAN HCT [Suspect]
     Dosage: UNK UKN, UNK

REACTIONS (1)
  - CEREBROVASCULAR ACCIDENT [None]
